FAERS Safety Report 9163133 (Version 4)
Quarter: 2018Q4

REPORT INFORMATION
  Report Type: Report from Study
  Country: FR (occurrence: FR)
  Receive Date: 20130314
  Receipt Date: 20181218
  Transmission Date: 20190205
  Serious: Yes (Life-Threatening, Hospitalization)
  Sender: FDA-Public Use
  Company Number: FR-ROCHE-1010146

PATIENT
  Age: 76 Year
  Sex: Female
  Weight: 54 kg

DRUGS (9)
  1. BEVACIZUMAB. [Suspect]
     Active Substance: BEVACIZUMAB
     Indication: OVARIAN CANCER
     Dosage: LAST DOSE PRIOR TO SAE ON 26/OCT/2011
     Route: 042
     Dates: start: 20110713, end: 20111026
  2. LEVOTHYROX [Concomitant]
     Active Substance: LEVOTHYROXINE
     Dosage: REPORTED END DATE: 13/DEC/2013
     Route: 065
     Dates: start: 20110511
  3. PACLITAXEL. [Suspect]
     Active Substance: PACLITAXEL
     Indication: OVARIAN CANCER
     Dosage: LAST DOSE PRIOR TO SAE ON 26/OCT/2011
     Route: 042
     Dates: start: 20110713, end: 20111026
  4. MORPHINE [Concomitant]
     Active Substance: MORPHINE
  5. INEXIUM [Concomitant]
     Active Substance: ESOMEPRAZOLE
     Route: 065
     Dates: start: 20110511, end: 20120214
  6. CARBOPLATIN. [Suspect]
     Active Substance: CARBOPLATIN
     Indication: OVARIAN CANCER
     Dosage: LAST DOSE PRIOR TO SAE ON 26/OCT/2011
     Route: 042
     Dates: start: 20110713, end: 20111026
  7. HYPERIUM [Concomitant]
     Active Substance: RILMENIDINE PHOSPHATE
     Route: 065
     Dates: start: 20110510, end: 20120214
  8. TEMESTA (FRANCE) [Concomitant]
     Active Substance: LORAZEPAM
     Route: 065
     Dates: start: 20110511, end: 20111213
  9. ALDACTAZINE [Concomitant]
     Active Substance: ALTHIAZIDE\SPIRONOLACTONE
     Route: 065
     Dates: start: 20110511, end: 20111213

REACTIONS (3)
  - Peritonitis [Recovered/Resolved with Sequelae]
  - Intestinal obstruction [Recovered/Resolved]
  - Female genital tract fistula [Recovered/Resolved]

NARRATIVE: CASE EVENT DATE: 20111026
